FAERS Safety Report 23585140 (Version 1)
Quarter: 2024Q1

REPORT INFORMATION
  Report Type: Spontaneous
  Country: CN (occurrence: None)
  Receive Date: 20240301
  Receipt Date: 20240301
  Transmission Date: 20240410
  Serious: Yes (Hospitalization)
  Sender: FDA-Public Use
  Company Number: 2024A046056

PATIENT
  Age: 9 Year
  Sex: Male

DRUGS (1)
  1. SYMBICORT [Suspect]
     Active Substance: BUDESONIDE\FORMOTEROL FUMARATE DIHYDRATE
     Indication: Cough variant asthma
     Dosage: 80UG, 4.5UG, TWICE A DAY, TWO INHALATIONS A TIME;60 INHALATIONS/PIECE, 1 PIECE/BOX
     Route: 055

REACTIONS (3)
  - Tremor [Unknown]
  - Device use issue [Unknown]
  - Wrong technique in device usage process [Unknown]
